FAERS Safety Report 17495078 (Version 1)
Quarter: 2020Q1

REPORT INFORMATION
  Report Type: Spontaneous
  Country: US (occurrence: US)
  Receive Date: 20200222
  Receipt Date: 20200222
  Transmission Date: 20200409
  Serious: Yes (Hospitalization)
  Sender: FDA-Public Use
  Company Number: None

PATIENT
  Sex: Male
  Weight: 105.6 kg

DRUGS (1)
  1. TEMOZOLOMIDE. [Suspect]
     Active Substance: TEMOZOLOMIDE
     Dates: end: 20200122

REACTIONS (7)
  - Radiation necrosis [None]
  - Fall [None]
  - Neuropathy peripheral [None]
  - Ataxia [None]
  - Headache [None]
  - Dizziness [None]
  - Hemiparesis [None]

NARRATIVE: CASE EVENT DATE: 20200208
